FAERS Safety Report 17892553 (Version 4)
Quarter: 2020Q3

REPORT INFORMATION
  Report Type: Spontaneous
  Country: US (occurrence: US)
  Receive Date: 20200612
  Receipt Date: 20200722
  Transmission Date: 20201103
  Serious: Yes (Hospitalization, Other)
  Sender: FDA-Public Use
  Company Number: US-SHIRE-US202019422

PATIENT
  Age: 20 Year
  Sex: Female
  Weight: 57 kg

DRUGS (7)
  1. DESVENLAFAXINE. [Concomitant]
     Active Substance: DESVENLAFAXINE
     Indication: BIPOLAR DISORDER
     Dosage: UNK
     Dates: end: 20200620
  2. LUVOX [Concomitant]
     Active Substance: FLUVOXAMINE MALEATE
     Indication: BIPOLAR DISORDER
     Dosage: UNK
     Dates: end: 20200620
  3. LEVOTHYROXINE. [Concomitant]
     Active Substance: LEVOTHYROXINE
     Indication: HYPOTHYROIDISM
     Dosage: UNK
  4. CUVITRU [Suspect]
     Active Substance: HUMAN IMMUNOGLOBULIN G
     Indication: IMMUNODEFICIENCY COMMON VARIABLE
  5. GEODON [Concomitant]
     Active Substance: ZIPRASIDONE HYDROCHLORIDE\ZIPRASIDONE MESYLATE
     Indication: BIPOLAR DISORDER
     Dosage: UNK
  6. CUVITRU [Suspect]
     Active Substance: HUMAN IMMUNOGLOBULIN G
     Indication: PRODUCT USED FOR UNKNOWN INDICATION
     Dosage: 9 GRAM, 1X/WEEK
     Route: 058
     Dates: start: 20200220, end: 20200604
  7. ELIQUIS [Concomitant]
     Active Substance: APIXABAN
     Indication: COAGULOPATHY
     Dosage: UNK

REACTIONS (9)
  - Urinary incontinence [Recovering/Resolving]
  - Selective IgA immunodeficiency [Recovered/Resolved]
  - Condition aggravated [Recovering/Resolving]
  - Vision blurred [Unknown]
  - Infusion site bruising [Unknown]
  - Serotonin syndrome [Recovering/Resolving]
  - Muscle spasms [Recovering/Resolving]
  - Arthralgia [Unknown]
  - Dysphagia [Unknown]

NARRATIVE: CASE EVENT DATE: 20200601
